FAERS Safety Report 9240985 (Version 1)
Quarter: 2013Q2

REPORT INFORMATION
  Report Type: Spontaneous
  Country: US (occurrence: US)
  Receive Date: 20130419
  Receipt Date: 20130419
  Transmission Date: 20140414
  Serious: No
  Sender: FDA-Public Use
  Company Number: US-SANOFI-AVENTIS-2013SA021913

PATIENT
  Sex: Female

DRUGS (1)
  1. LOVENOX [Suspect]
     Dosage: TAKING FOR 2 WEEKS

REACTIONS (4)
  - Abdominal distension [Unknown]
  - Contusion [Unknown]
  - Injection site nodule [Unknown]
  - Injection site discolouration [Unknown]
